FAERS Safety Report 4623323-X (Version None)
Quarter: 2005Q1

REPORT INFORMATION
  Report Type: 
  Country: None (occurrence: None)
  Receive Date: 20050329
  Receipt Date: 20040401
  Transmission Date: 20050727
  Serious: Yes (Other)
  Sender: FDA-Public Use
  Company Number: 9866

PATIENT
  Age: 33 Year
  Sex: Male

DRUGS (2)
  1. METHOTREXATE [Suspect]
  2. ETANERCEPT [Suspect]
     Dosage: 7.143 MG DAILY
     Dates: start: 20030602, end: 20040316

REACTIONS (1)
  - RHEUMATOID ARTHRITIS [None]
